FAERS Safety Report 22527932 (Version 2)
Quarter: 2023Q4

REPORT INFORMATION
  Report Type: Report from Study
  Country: CA (occurrence: CA)
  Receive Date: 20230606
  Receipt Date: 20231127
  Transmission Date: 20240110
  Serious: Yes (Hospitalization, Other)
  Sender: FDA-Public Use
  Company Number: CA-JNJFOC-20230324450

PATIENT
  Age: 49 Year
  Sex: Female

DRUGS (2)
  1. STELARA [Suspect]
     Active Substance: USTEKINUMAB
     Indication: Colitis ulcerative
     Dosage: ON 04-MAY-2023, THE PATIENT HAD INJECTION?EXPIRATION DATE: 31-OCT-2025?THERAPY START DATE: 16/FEB/20
     Route: 058
     Dates: start: 20220217
  2. STELARA [Suspect]
     Active Substance: USTEKINUMAB

REACTIONS (3)
  - Device related infection [Recovered/Resolved]
  - Surgery [Recovering/Resolving]
  - Breast reconstruction [Recovering/Resolving]

NARRATIVE: CASE EVENT DATE: 20230223
